FAERS Safety Report 8607302 (Version 3)
Quarter: 2014Q1

REPORT INFORMATION
  Report Type: Spontaneous
  Country: US (occurrence: US)
  Receive Date: 20120611
  Receipt Date: 20140116
  Transmission Date: 20141002
  Serious: No
  Sender: FDA-Public Use
  Company Number: US-ASTRAZENECA-2012SE36204

PATIENT
  Age: 71 Year
  Sex: Female
  Weight: 68 kg

DRUGS (10)
  1. NEXIUM [Suspect]
     Indication: DYSPEPSIA
     Route: 048
     Dates: start: 20070605, end: 20070801
  2. NEXIUM [Suspect]
     Indication: DYSPEPSIA
     Dosage: ONCE PER DAY
     Route: 048
     Dates: start: 200805, end: 201201
  3. B 12 [Concomitant]
  4. IRON [Concomitant]
  5. CALTRATE [Concomitant]
  6. PROMENRIL [Concomitant]
  7. ECOTRIN [Concomitant]
     Dates: start: 20070302, end: 20070417
  8. LIPITOR [Concomitant]
     Route: 048
     Dates: start: 20070306, end: 20070417
  9. FLEXERIL [Concomitant]
     Route: 048
     Dates: start: 20070605, end: 20081208
  10. COZAAR [Concomitant]
     Route: 048
     Dates: start: 20110207

REACTIONS (4)
  - Osteoporosis [Unknown]
  - Multiple fractures [Unknown]
  - Cataract [Unknown]
  - Osteopenia [Unknown]
